FAERS Safety Report 15368920 (Version 1)
Quarter: 2018Q4

REPORT INFORMATION
  Report Type: Spontaneous
  Country: ES (occurrence: ES)
  Receive Date: 20180911
  Receipt Date: 20180911
  Transmission Date: 20190204
  Serious: Yes (Death)
  Sender: FDA-Public Use
  Company Number: ES-AUROBINDO-AUR-APL-2018-044723

PATIENT
  Age: 89 Year
  Sex: Female

DRUGS (1)
  1. BISOPROLOL 2.5 MG FILM COATED TABLETS [Suspect]
     Active Substance: BISOPROLOL
     Indication: TACHYCARDIA
     Dosage: 1.25 MILLIGRAM, DAILY
     Route: 048
     Dates: start: 20150703, end: 20180708

REACTIONS (1)
  - Sinus bradycardia [Fatal]

NARRATIVE: CASE EVENT DATE: 20180708
